FAERS Safety Report 26112189 (Version 1)
Quarter: 2025Q4

REPORT INFORMATION
  Report Type: Spontaneous
  Country: US (occurrence: None)
  Receive Date: 20251201
  Receipt Date: 20251201
  Transmission Date: 20260117
  Serious: Yes (Other)
  Sender: FDA-CTU
  Company Number: None

PATIENT

DRUGS (1)
  1. TADALAFIL [Suspect]
     Active Substance: TADALAFIL
     Indication: Erectile dysfunction
     Dosage: FREQUENCY : AS NEEDED;?
     Route: 048
     Dates: start: 20251124

REACTIONS (1)
  - Memory impairment [None]

NARRATIVE: CASE EVENT DATE: 20251126
